FAERS Safety Report 15889361 (Version 1)
Quarter: 2019Q1

REPORT INFORMATION
  Report Type: Spontaneous
  Country: GB (occurrence: GB)
  Receive Date: 20190130
  Receipt Date: 20190130
  Transmission Date: 20190417
  Serious: Yes (Other)
  Sender: FDA-Public Use
  Company Number: GB-PFIZER INC-2019032720

PATIENT
  Sex: Male

DRUGS (2)
  1. FENTANYL. [Suspect]
     Active Substance: FENTANYL
     Dosage: UNK
  2. TAMSULOSIN [Interacting]
     Active Substance: TAMSULOSIN
     Dosage: UNK

REACTIONS (2)
  - Orthostatic hypotension [Unknown]
  - Drug interaction [Unknown]
